FAERS Safety Report 9626110 (Version 1)
Quarter: 2013Q4

REPORT INFORMATION
  Report Type: Report from Study
  Country: US (occurrence: US)
  Receive Date: 20131016
  Receipt Date: 20131016
  Transmission Date: 20140711
  Serious: Yes (Death)
  Sender: FDA-Public Use
  Company Number: US-ABBVIE-13P-163-1157528-00

PATIENT
  Age: 54 Year
  Sex: Male

DRUGS (3)
  1. HUMIRA [Suspect]
     Indication: PSORIATIC ARTHROPATHY
     Dates: start: 201210
  2. MEDICATIONS [Concomitant]
     Indication: HYPERTENSION
  3. MEDICATIONS [Concomitant]
     Indication: ASTHMA

REACTIONS (1)
  - Cardiac arrest [Fatal]
